FAERS Safety Report 4363129-2 (Version None)
Quarter: 2004Q2

REPORT INFORMATION
  Report Type: 
  Country: None (occurrence: None)
  Receive Date: 20040519
  Receipt Date: 20040507
  Transmission Date: 20050107
  Serious: Yes (Disabling)
  Sender: FDA-Public Use
  Company Number: 04P-151-0260447-00

PATIENT
  Age: 34 Year
  Sex: Female
  Weight: 65 kg

DRUGS (2)
  1. KENDURAL TABLETS (FERROUS SULFATE/ASCORBIC ACID) (FERROUS SULFATE/ASCO [Suspect]
     Indication: ANAEMIA
     Dosage: 325 MG, 1 IN 1 D, PER ORAL
     Route: 048
     Dates: start: 20031201, end: 20031204
  2. KENDURAL TABLETS (FERROUS SULFATE/ASCORBIC ACID) (FERROUS SULFATE/ASCO [Suspect]
     Indication: MENORRHAGIA
     Dosage: 325 MG, 1 IN 1 D, PER ORAL
     Route: 048
     Dates: start: 20031201, end: 20031204

REACTIONS (6)
  - ANGIONEUROTIC OEDEMA [None]
  - DIARRHOEA [None]
  - DRUG HYPERSENSITIVITY [None]
  - REACTION TO DRUG EXCIPIENT [None]
  - TYPE II HYPERSENSITIVITY [None]
  - URTICARIA [None]
